FAERS Safety Report 4537577-1 (Version None)
Quarter: 2004Q4

REPORT INFORMATION
  Report Type: 
  Country: None (occurrence: None)
  Receive Date: 20041221
  Receipt Date: 20041013
  Transmission Date: 20050328
  Serious: No
  Sender: FDA-Public Use
  Company Number: A-AUS2004-07731

PATIENT
  Age: 47 Year
  Sex: Female

DRUGS (3)
  1. TRACLEER [Suspect]
     Indication: PULMONARY HYPERTENSION
     Dosage: ORAL
     Route: 048
  2. KLONOPIN [Concomitant]
  3. LASIX (FUROSEMDIE0 [Concomitant]

REACTIONS (1)
  - HOT FLUSH [None]
